FAERS Safety Report 16799884 (Version 1)
Quarter: 2019Q4

REPORT INFORMATION
  Report Type: Spontaneous
  Country: US (occurrence: US)
  Receive Date: 20190912
  Receipt Date: 20190912
  Transmission Date: 20200122
  Serious: Yes (Death)
  Sender: FDA-Public Use
  Company Number: None

PATIENT
  Age: 62 Year
  Sex: Male

DRUGS (3)
  1. ACYCLOVIR. [Concomitant]
     Active Substance: ACYCLOVIR
  2. DEFERASIROX. [Suspect]
     Active Substance: DEFERASIROX
     Indication: HAEMOCHROMATOSIS
     Route: 048
     Dates: start: 20181119, end: 20190911
  3. PANTOPRAZOLE [Concomitant]
     Active Substance: PANTOPRAZOLE

REACTIONS (2)
  - Death [None]
  - Product substitution issue [None]

NARRATIVE: CASE EVENT DATE: 20190911
